FAERS Safety Report 6495238-6 (Version None)
Quarter: 2009Q4

REPORT INFORMATION
  Report Type: 
  Country: None (occurrence: None)
  Receive Date: 20091214
  Receipt Date: 20090519
  Transmission Date: 20100525
  Serious: No
  Sender: FDA-Public Use
  Company Number: US-BRISTOL-MYERS SQUIBB COMPANY-14629315

PATIENT
  Age: 58 Year
  Sex: Female
  Weight: 91 kg

DRUGS (2)
  1. ABILIFY [Suspect]
     Indication: SCHIZOPHRENIA
     Dosage: TAKEN FOR ABOUT A YEAR AND DISCONTINUED; RESTARTED 3 MONTHS AGO AT 10MG DAILY
  2. ABILIFY [Suspect]
     Indication: DEPRESSION
     Dosage: TAKEN FOR ABOUT A YEAR AND DISCONTINUED; RESTARTED 3 MONTHS AGO AT 10MG DAILY

REACTIONS (1)
  - TREMOR [None]
